FAERS Safety Report 11090858 (Version 2)
Quarter: 2015Q2

REPORT INFORMATION
  Report Type: Spontaneous
  Country: DE (occurrence: DE)
  Receive Date: 20150505
  Receipt Date: 20150514
  Transmission Date: 20150821
  Serious: Yes (Life-Threatening)
  Sender: FDA-Public Use
  Company Number: DE-GE HEALTHCARE MEDICAL DIAGNOSTICS-VISP-PR-1504S-0158

PATIENT
  Age: 61 Year
  Sex: Female
  Weight: 45 kg

DRUGS (9)
  1. PANTOZOL [Concomitant]
     Active Substance: PANTOPRAZOLE SODIUM
     Route: 042
  2. PERFALGAN [Concomitant]
     Active Substance: ACETAMINOPHEN
  3. VISIPAQUE [Suspect]
     Active Substance: IODIXANOL
     Indication: NEOPLASM PROGRESSION
     Route: 042
     Dates: start: 20141105, end: 20141105
  4. CA DRINK [Concomitant]
  5. NOVAMIN-GOUTTES [Concomitant]
  6. VISIPAQUE [Suspect]
     Active Substance: IODIXANOL
     Indication: DIAGNOSTIC PROCEDURE
  7. SALBUTAMOL [Concomitant]
     Active Substance: ALBUTEROL
     Route: 055
  8. TOREM [Concomitant]
     Active Substance: TORSEMIDE
  9. ATROVENT [Concomitant]
     Active Substance: IPRATROPIUM BROMIDE
     Route: 055

REACTIONS (3)
  - Loss of consciousness [Recovered/Resolved]
  - Presyncope [Recovered/Resolved]
  - Apnoea [Recovered/Resolved]

NARRATIVE: CASE EVENT DATE: 20141105
